FAERS Safety Report 23952834 (Version 2)
Quarter: 2024Q3

REPORT INFORMATION
  Report Type: Spontaneous
  Country: JP (occurrence: JP)
  Receive Date: 20240607
  Receipt Date: 20240812
  Transmission Date: 20241016
  Serious: No
  Sender: NEUROCRINE BIOSCIENCES
  Company Number: JP-NEUROCRINE BIOSCIENCES INC.-2024NBI05536

PATIENT
  Age: 58 Year
  Sex: Female

DRUGS (13)
  1. VALBENAZINE [Suspect]
     Active Substance: VALBENAZINE
     Indication: Tardive dyskinesia
     Dosage: 40 MILLIGRAM, QD
     Route: 048
     Dates: start: 20240426, end: 20240511
  2. SOLANAX [Concomitant]
     Active Substance: ALPRAZOLAM
     Indication: Anxiety
     Dosage: UNK
     Dates: start: 20100615
  3. REBAMIPIDE [Concomitant]
     Active Substance: REBAMIPIDE
     Indication: Chronic gastritis
     Dosage: UNK
     Dates: start: 20100615
  4. AMLODIPINE BESYLATE [Concomitant]
     Active Substance: AMLODIPINE BESYLATE
     Indication: Essential hypertension
     Dosage: UNK
     Dates: start: 20180927
  5. BROTIZOLAM [Concomitant]
     Active Substance: BROTIZOLAM
     Indication: Insomnia
     Dosage: UNK
     Dates: start: 20231028
  6. SEROQUEL [Concomitant]
     Active Substance: QUETIAPINE FUMARATE
     Indication: Schizophrenia
     Dosage: UNK
     Dates: start: 20231110
  7. RIVOTRIL [Concomitant]
     Active Substance: CLONAZEPAM
     Indication: Seizure
     Dosage: UNK
     Dates: start: 20231207
  8. RIVOTRIL [Concomitant]
     Active Substance: CLONAZEPAM
     Indication: Hypotonia
  9. VALPROATE SODIUM [Concomitant]
     Active Substance: VALPROATE SODIUM
     Indication: Seizure
     Dosage: UNK
     Dates: start: 20231207
  10. KAMBAKUTAISOTO [Concomitant]
     Indication: Tic
     Dosage: UNK
     Dates: start: 20240411
  11. LUNESTA [Concomitant]
     Active Substance: ESZOPICLONE
     Indication: Insomnia
     Dosage: UNK
     Dates: start: 20240426
  12. LUVOX [Concomitant]
     Active Substance: FLUVOXAMINE MALEATE
     Indication: Depression
     Dosage: UNK
  13. PEROSPIRONE HYDROCHLORIDE [Concomitant]
     Active Substance: PEROSPIRONE HYDROCHLORIDE

REACTIONS (1)
  - Depression [Recovered/Resolved]

NARRATIVE: CASE EVENT DATE: 20240428
